FAERS Safety Report 10373956 (Version 1)
Quarter: 2014Q1

REPORT INFORMATION
  Report Type: Spontaneous
  Country: US (occurrence: None)
  Receive Date: 20140306
  Receipt Date: 20140306
  Transmission Date: 20141002
  Serious: Yes (Other)
  Sender: FDA-Public Use
  Company Number: 163-21880-13014664

PATIENT
  Age: 74 Year
  Sex: Male

DRUGS (5)
  1. REVLIMID [Suspect]
     Indication: PLASMA CELL MYELOMA
     Dosage: 10 MG, 1 IN 2 D, PO
     Route: 048
     Dates: start: 20100126, end: 2013
  2. ENOXAPARIN SODIUM (HEPARIN-FRACTION, SODIUM SALT) (INJECTION) [Concomitant]
  3. PROCRIT (ERYTHROPOIETIN) (INJECTION) [Concomitant]
  4. CHERATUSSIN AC (CHERATUSSIN AC) (SYRUP) [Concomitant]
  5. DEXAMETHASONE (DEXAMETHASONE) [Concomitant]

REACTIONS (5)
  - Deep vein thrombosis [None]
  - Plasma cell myeloma [None]
  - Monoclonal immunoglobulin present [None]
  - Haemoglobin decreased [None]
  - Sinusitis [None]
